FAERS Safety Report 4644144-8 (Version None)
Quarter: 2005Q2

REPORT INFORMATION
  Report Type: 
  Country: None (occurrence: None)
  Receive Date: 20050425
  Receipt Date: 20050412
  Transmission Date: 20051028
  Serious: Yes (Hospitalization)
  Sender: FDA-Public Use
  Company Number: IT-GLAXOSMITHKLINE-B0377720A

PATIENT
  Age: 46 Year
  Sex: Male

DRUGS (2)
  1. GW433908 [Suspect]
     Indication: HIV INFECTION
     Dosage: 700MG TWICE PER DAY
     Route: 048
     Dates: start: 20041019, end: 20041227
  2. RITONAVIR [Suspect]
     Indication: HIV INFECTION
     Dosage: 100MG TWICE PER DAY
     Route: 048
     Dates: start: 20041019, end: 20041227

REACTIONS (4)
  - ASCITES [None]
  - PNEUMONIA STREPTOCOCCAL [None]
  - PYREXIA [None]
  - SHOCK [None]
